FAERS Safety Report 25380585 (Version 2)
Quarter: 2025Q4

REPORT INFORMATION
  Report Type: Spontaneous
  Country: US (occurrence: US)
  Receive Date: 20250530
  Receipt Date: 20251205
  Transmission Date: 20260118
  Serious: Yes (Hospitalization, Other)
  Sender: SK LIFE SCIENCE
  Company Number: US-UCBSA-2025031508

PATIENT

DRUGS (23)
  1. XCOPRI [Suspect]
     Active Substance: CENOBAMATE
     Indication: Status epilepticus
     Dosage: UNK
     Route: 065
  2. LEVETIRACETAM [Suspect]
     Active Substance: LEVETIRACETAM
     Indication: Generalised tonic-clonic seizure
     Dosage: UNK
     Route: 065
  3. LEVETIRACETAM [Suspect]
     Active Substance: LEVETIRACETAM
     Indication: Status epilepticus
  4. LEVETIRACETAM [Suspect]
     Active Substance: LEVETIRACETAM
     Indication: Off label use
  5. LACOSAMIDE [Suspect]
     Active Substance: LACOSAMIDE
     Indication: Status epilepticus
     Dosage: UNK
     Route: 065
  6. BRIVARACETAM [Suspect]
     Active Substance: BRIVARACETAM
     Indication: Status epilepticus
     Dosage: UNK
     Route: 065
  7. MIDAZOLAM [Suspect]
     Active Substance: MIDAZOLAM
     Indication: Anaesthesia
     Dosage: UNK
     Route: 042
  8. MIDAZOLAM [Suspect]
     Active Substance: MIDAZOLAM
     Indication: Off label use
  9. MIDAZOLAM [Suspect]
     Active Substance: MIDAZOLAM
     Indication: Off label use
  10. FOSPHENYTOIN [Suspect]
     Active Substance: FOSPHENYTOIN
     Indication: Status epilepticus
     Dosage: UNK
     Route: 065
  11. PERAMPANEL [Suspect]
     Active Substance: PERAMPANEL
     Indication: Status epilepticus
     Dosage: UNK
     Route: 065
  12. CLOBAZAM [Suspect]
     Active Substance: CLOBAZAM
     Indication: Status epilepticus
     Dosage: UNK
     Route: 065
  13. FELBAMATE [Suspect]
     Active Substance: FELBAMATE
     Indication: Status epilepticus
     Dosage: UNK
     Route: 065
  14. GANAXOLONE [Suspect]
     Active Substance: GANAXOLONE
     Indication: Status epilepticus
     Dosage: UNK
     Route: 065
  15. METHYLPREDNISOLONE [Concomitant]
     Active Substance: METHYLPREDNISOLONE
     Indication: Immunodeficiency
     Dosage: 1 GRAM, 3X/DAY (TID)
     Route: 042
  16. ANAKINRA [Concomitant]
     Active Substance: ANAKINRA
     Indication: Immunodeficiency
     Dosage: 4 MILLIGRAM/KILOGRAM (9 DAYS)
     Route: 065
  17. ANAKINRA [Concomitant]
     Active Substance: ANAKINRA
     Dosage: 8 MILLIGRAM/KILOGRAM (12 DAYS)
     Route: 065
  18. TOCILIZUMAB [Concomitant]
     Active Substance: TOCILIZUMAB
     Indication: Immunodeficiency
     Dosage: 8 MILLIGRAM/KILOGRAM, ONCE DAILY (QD)
     Route: 065
  19. BARICITINIB [Concomitant]
     Active Substance: BARICITINIB
     Indication: Immunodeficiency
     Dosage: 4 MILLIGRAM, DAILY
     Route: 065
  20. BARICITINIB [Concomitant]
     Active Substance: BARICITINIB
     Dosage: 2 MILLIGRAM, DAILY
     Route: 065
  21. IMMUNE GLOBULIN NOS [Concomitant]
     Active Substance: IMMUNE GLOBULIN NOS
     Indication: Immunodeficiency
     Dosage: 2 GRAM PER KILOGRAM, OVER 4 DAYS
     Route: 042
  22. PENTOBARBITAL [Concomitant]
     Active Substance: PENTOBARBITAL
     Indication: Anaesthesia
     Dosage: UNK
     Route: 042
  23. KETAMINE [Concomitant]
     Active Substance: KETAMINE
     Indication: Product used for unknown indication
     Dosage: UNK
     Route: 042

REACTIONS (9)
  - Pneumonia [Unknown]
  - Bacteraemia [Unknown]
  - Hospitalisation [Unknown]
  - Tracheitis [Unknown]
  - Antimicrobial susceptibility test resistant [Unknown]
  - Off label use [Unknown]
  - Off label use [Unknown]
  - Urinary tract infection [Unknown]
  - Drug-induced liver injury [Unknown]
